FAERS Safety Report 12864854 (Version 1)
Quarter: 2016Q4

REPORT INFORMATION
  Report Type: Spontaneous
  Country: US (occurrence: US)
  Receive Date: 20161019
  Receipt Date: 20161019
  Transmission Date: 20170207
  Serious: Yes (Hospitalization)
  Sender: FDA-Public Use
  Company Number: None

PATIENT
  Age: 80 Year
  Sex: Female
  Weight: 57.8 kg

DRUGS (2)
  1. AZD1775 ASTRA ZENECA [Suspect]
     Active Substance: INVESTIGATIONAL PRODUCT
     Indication: COLON CANCER
     Dosage: ?          OTHER FREQUENCY:BID X 3 DAYS;?
     Route: 048
     Dates: start: 20160922, end: 20161013
  2. IRINOTECAN THYMOORGAN PHARMAZIE [Suspect]
     Active Substance: IRINOTECAN HYDROCHLORIDE
     Indication: COLON CANCER
     Dosage: ?          OTHER FREQUENCY:Q 2 WEEKS;?
     Route: 042
     Dates: start: 20160922, end: 20161013

REACTIONS (11)
  - Blood creatinine increased [None]
  - Abdominal pain [None]
  - Vomiting [None]
  - Retching [None]
  - Abdominal pain lower [None]
  - Feeding disorder [None]
  - Fluid intake reduced [None]
  - Chills [None]
  - Balance disorder [None]
  - Diarrhoea [None]
  - Asthenia [None]

NARRATIVE: CASE EVENT DATE: 20161017
